FAERS Safety Report 5004816-2 (Version None)
Quarter: 2006Q1

REPORT INFORMATION
  Report Type: 
  Country: None (occurrence: None)
  Receive Date: 20060321
  Receipt Date: 20051221
  Transmission Date: 20060701
  Serious: No
  Sender: FDA-Public Use
  Company Number: YPA20060010

PATIENT
  Age: 72 Year
  Sex: Male
  Weight: 90.9 kg

DRUGS (14)
  1. VESICARE [Suspect]
     Indication: POLLAKIURIA
     Dosage: SEE IMAGE
     Route: 048
     Dates: start: 20050901, end: 20051017
  2. VESICARE [Suspect]
     Indication: POLLAKIURIA
     Dosage: SEE IMAGE
     Route: 048
     Dates: start: 20051215, end: 20051217
  3. VESICARE [Suspect]
     Indication: POLLAKIURIA
     Dosage: SEE IMAGE
     Route: 048
     Dates: start: 20051218
  4. AVANDIA (ROSIGLITAZONE HYDROCHLORIDE) [Concomitant]
  5. ZOCOR [Concomitant]
  6. ZYRTEC [Concomitant]
  7. FLOMAX ^BOEHRINGER INGELHEIM^ (TAMSULOSIN) [Concomitant]
  8. NEXIUM [Concomitant]
  9. AGGRENOX [Concomitant]
  10. FOSAMAX [Concomitant]
  11. EYECAPS CAPSULE [Concomitant]
  12. CENTRIUM (VITAMINS NOS, MINERALS NOS) [Concomitant]
  13. CITRACEL WITH VITAMIN D TABLET [Concomitant]
  14. TYLENOL TABLET [Concomitant]

REACTIONS (1)
  - RASH PRURITIC [None]
